FAERS Safety Report 4778330-3 (Version None)
Quarter: 2005Q3

REPORT INFORMATION
  Report Type: 
  Country: None (occurrence: None)
  Receive Date: 20050922
  Receipt Date: 20050809
  Transmission Date: 20060218
  Serious: Yes (Hospitalization)
  Sender: FDA-Public Use
  Company Number: 2005PV001788

PATIENT
  Age: 43 Year
  Sex: Female
  Weight: 99.7913 kg

DRUGS (7)
  1. BYETTA [Suspect]
     Indication: DIABETES MELLITUS NON-INSULIN-DEPENDENT
     Dosage: 5 + 10 MCG; BID; SC
     Route: 058
     Dates: start: 20050701, end: 20050801
  2. BYETTA [Suspect]
     Indication: DIABETES MELLITUS NON-INSULIN-DEPENDENT
     Dosage: 5 + 10 MCG; BID; SC
     Route: 058
     Dates: start: 20050801
  3. GLIPIZIDE [Concomitant]
  4. PROZAC [Concomitant]
  5. CORZIDE ^MONARCH^ [Concomitant]
  6. ACIDOPHILUS ^ZYMA^ [Concomitant]
  7. ALPHA LIPOIC ACID [Concomitant]

REACTIONS (7)
  - BLOOD GLUCOSE INCREASED [None]
  - BLOOD POTASSIUM DECREASED [None]
  - CLOSTRIDIAL INFECTION [None]
  - COLITIS [None]
  - MENSTRUATION IRREGULAR [None]
  - NEPHROLITHIASIS [None]
  - WEIGHT DECREASED [None]
